FAERS Safety Report 14981383 (Version 1)
Quarter: 2018Q2

REPORT INFORMATION
  Report Type: Spontaneous
  Country: AU (occurrence: AU)
  Receive Date: 20180606
  Receipt Date: 20180606
  Transmission Date: 20180711
  Serious: Yes (Other)
  Sender: FDA-Public Use
  Company Number: AU-009507513-1805AUS014950

PATIENT
  Age: 72 Year
  Sex: Male
  Weight: 76 kg

DRUGS (1)
  1. KEYTRUDA [Suspect]
     Active Substance: PEMBROLIZUMAB
     Dosage: 17 DOSE UNSPECIFIED, DAILY
     Dates: start: 20150821, end: 20161014

REACTIONS (1)
  - Deafness bilateral [Recovered/Resolved]

NARRATIVE: CASE EVENT DATE: 20161007
